FAERS Safety Report 9803202 (Version 2)
Quarter: 2014Q1

REPORT INFORMATION
  Report Type: Spontaneous
  Country: US (occurrence: US)
  Receive Date: 20140108
  Receipt Date: 20140131
  Transmission Date: 20141002
  Serious: No
  Sender: FDA-Public Use
  Company Number: US-PFIZER INC-2014003191

PATIENT
  Age: 57 Year
  Sex: Male

DRUGS (2)
  1. VIAGRA [Suspect]
     Dosage: (100MG TABLETS CUT IN QUARTERS)
  2. VIAGRA [Suspect]
     Dosage: 100 MG, UNK

REACTIONS (1)
  - Drug ineffective [Unknown]
